FAERS Safety Report 15091799 (Version 1)
Quarter: 2018Q2

REPORT INFORMATION
  Report Type: Spontaneous
  Country: US (occurrence: US)
  Receive Date: 20180629
  Receipt Date: 20180629
  Transmission Date: 20180711
  Serious: No
  Sender: FDA-Public Use
  Company Number: US-AMGEN-USASP2014080085

PATIENT
  Age: 85 Year
  Sex: Female

DRUGS (9)
  1. VITAMIN D                          /00107901/ [Concomitant]
     Active Substance: ERGOCALCIFEROL
  2. PROLIA [Suspect]
     Active Substance: DENOSUMAB
     Indication: OSTEOPOROSIS POSTMENOPAUSAL
     Route: 065
  3. IRON [Concomitant]
     Active Substance: IRON
  4. ATENOLOL. [Concomitant]
     Active Substance: ATENOLOL
  5. LISINOPRIL. [Concomitant]
     Active Substance: LISINOPRIL
  6. POTASSIUM [Concomitant]
     Active Substance: POTASSIUM
  7. LIPITOR [Concomitant]
     Active Substance: ATORVASTATIN CALCIUM
  8. CALCIUM [Concomitant]
     Active Substance: CALCIUM
  9. BABY ASPIRIN [Concomitant]
     Active Substance: ASPIRIN

REACTIONS (2)
  - Muscle spasms [Unknown]
  - Pain in extremity [Unknown]
